FAERS Safety Report 12904477 (Version 1)
Quarter: 2016Q4

REPORT INFORMATION
  Report Type: Spontaneous
  Country: IL (occurrence: IL)
  Receive Date: 20161102
  Receipt Date: 20161102
  Transmission Date: 20170207
  Serious: Yes (Hospitalization)
  Sender: FDA-Public Use
  Company Number: IL-JNJFOC-20161026038

PATIENT

DRUGS (12)
  1. CLOTHIAPINE [Concomitant]
     Active Substance: CLOTHIAPINE
     Dosage: 212 +/- 80.9 MG
     Route: 065
  2. ZUCLOPENTHIXOL DECANOATE [Concomitant]
     Active Substance: ZUCLOPENTHIXOL DECANOATE
     Dosage: 274.7 +/- 84.8MG PER 2-4 WEEKS
     Route: 065
  3. CLOZAPINE. [Concomitant]
     Active Substance: CLOZAPINE
     Dosage: 356.8 +/- 132.7 MG
     Route: 065
  4. HALOPERIDOL. [Suspect]
     Active Substance: HALOPERIDOL
     Indication: SCHIZOPHRENIA
     Dosage: 8.6 +/- 4 MG
     Route: 048
  5. HALOPERIDOL DEPOT [Suspect]
     Active Substance: HALOPERIDOL
     Indication: SCHIZOPHRENIA
     Dosage: 200.6   /- 65.9 MG, PER 2-4 WEEKS
     Route: 065
  6. QUETIAPINE. [Concomitant]
     Active Substance: QUETIAPINE
     Dosage: 535.4 +/- 120.5 MG
     Route: 065
  7. LEVOMEPROMAZINE [Concomitant]
     Active Substance: LEVOMEPROMAZINE
     Dosage: 201.1 +/- 162.8 MG
     Route: 048
  8. OLANZAPINE. [Concomitant]
     Active Substance: OLANZAPINE
     Dosage: 17.6+/- 5.2 MG
     Route: 065
  9. LITHIUM. [Suspect]
     Active Substance: LITHIUM
     Indication: PRODUCT USED FOR UNKNOWN INDICATION
     Route: 065
  10. RISPERIDONE. [Suspect]
     Active Substance: RISPERIDONE
     Indication: SCHIZOPHRENIA
     Dosage: 4.1 /- 1.0 MG PER DAY
     Route: 065
  11. SULPIRIDE [Concomitant]
     Active Substance: SULPIRIDE
     Dosage: 6+/- 4 MG
     Route: 048
  12. FLUPHENAZINE DECANOATE. [Concomitant]
     Active Substance: FLUPHENAZINE DECANOATE
     Dosage: 84.85  /- 15.9 MG, PER 2-4 WEEKS
     Route: 065

REACTIONS (1)
  - Hospitalisation [Unknown]
